FAERS Safety Report 6733048-2 (Version None)
Quarter: 2010Q2

REPORT INFORMATION
  Report Type: 
  Country: None (occurrence: None)
  Receive Date: 20100518
  Receipt Date: 20100504
  Transmission Date: 20101027
  Serious: Yes (Other)
  Sender: FDA-Public Use
  Company Number: 011507

PATIENT

DRUGS (1)
  1. LACOSAMIDE [Suspect]
     Indication: EPILEPSY
     Dosage: (MIDDLE DOSIS 300 MG)

REACTIONS (2)
  - CONDITION AGGRAVATED [None]
  - CONVULSION [None]
